FAERS Safety Report 7249235-3 (Version None)
Quarter: 2011Q1

REPORT INFORMATION
  Report Type: 
  Country: None (occurrence: None)
  Receive Date: 20110128
  Receipt Date: 20101123
  Transmission Date: 20110831
  Serious: Yes (Hospitalization, Other)
  Sender: FDA-Public Use
  Company Number: US-BAYER-201029047NA

PATIENT
  Sex: Female
  Weight: 130 kg

DRUGS (24)
  1. ASCORBIC ACID [Concomitant]
     Dosage: 1000 MG, QD
  2. PEPCID [Concomitant]
     Dosage: UNK
     Dates: start: 20091001
  3. ASPIRIN [Concomitant]
     Dosage: UNK
     Dates: start: 20091001
  4. PERIDEX [Concomitant]
  5. WELLBUTRIN [Concomitant]
     Indication: EX-TOBACCO USER
     Dosage: 150 MG, UNK
     Dates: start: 20090401, end: 20090901
  6. BIOTIN [Concomitant]
     Indication: THERAPEUTIC SKIN CARE TOPICAL
     Dosage: 1000 MG, QD
  7. ZOFRAN [Concomitant]
     Dosage: UNK
     Dates: start: 20091001
  8. UNCODEABLE ^UNCLASSIFIABLE^ [Concomitant]
     Dosage: UNK
     Dates: start: 20091001
  9. YASMIN [Suspect]
     Indication: PRODUCT USED FOR UNKNOWN INDICATION
     Dosage: UNK
     Route: 048
     Dates: start: 20080501, end: 20091001
  10. UNCODEABLE ^UNCLASSIFIABLE^ [Concomitant]
  11. YAZ [Suspect]
     Indication: CONTRACEPTION
     Dosage: UNK
     Route: 048
     Dates: start: 20080501, end: 20090101
  12. TETRACYCLINE [Concomitant]
  13. ALPHA LIPOIC ACID [Concomitant]
     Indication: THERAPEUTIC SKIN CARE TOPICAL
  14. ZOLOFT [Concomitant]
     Dosage: UNK
     Dates: start: 20091001
  15. LABETALOL HCL [Concomitant]
     Dosage: UNK
     Dates: start: 20091001
  16. FENTANYL [Concomitant]
     Dosage: UNK
     Dates: start: 20091001
  17. MAALOX [Concomitant]
     Dosage: UNK
     Dates: start: 20091001, end: 20091001
  18. BACLOFEN [Concomitant]
     Dosage: UNK
     Dates: start: 20091001
  19. PNEUMOCOCCAL VACCINE [Concomitant]
     Dates: start: 20091001, end: 20091001
  20. HYDRALAZINE HCL [Concomitant]
     Dosage: UNK
     Dates: start: 20091001
  21. MULTI-VITAMIN [Concomitant]
     Dosage: UNK UNK, QD
  22. VITAMIN D [Concomitant]
     Dosage: 500 MG, QD
  23. INSULIN [Concomitant]
     Dosage: UNK
     Dates: start: 20091001
  24. ARIXTRA [Concomitant]
     Dosage: UNK
     Dates: start: 20091001

REACTIONS (9)
  - TONIC CLONIC MOVEMENTS [None]
  - HYPOTONIA [None]
  - HEMIPARESIS [None]
  - WEIGHT FLUCTUATION [None]
  - VESSEL PERFORATION [None]
  - CEREBRAL INFARCTION [None]
  - MOTOR DYSFUNCTION [None]
  - LOSS OF CONSCIOUSNESS [None]
  - CONVULSION [None]
